FAERS Safety Report 5926855-7 (Version None)
Quarter: 2008Q4

REPORT INFORMATION
  Report Type: 
  Country: None (occurrence: None)
  Receive Date: 20081017
  Receipt Date: 20081010
  Transmission Date: 20090506
  Serious: Yes (Other)
  Sender: FDA-Public Use
  Company Number: 2008BI021645

PATIENT
  Sex: Female

DRUGS (13)
  1. AVONEX [Suspect]
     Indication: MULTIPLE SCLEROSIS
     Dosage: 30 UG;QW;IM
     Route: 030
     Dates: start: 20070913
  2. SANCTURA (CON.) [Concomitant]
  3. OXYTROL (CON.) [Concomitant]
  4. ATIVAN (CON.) [Concomitant]
  5. ASPIRIN ENTERIC COATED (CON.0 [Concomitant]
  6. HYDROCODONE/ ACETAMINOPHEN (CON.) [Concomitant]
  7. POTASSIUM (CON.) [Concomitant]
  8. ANTIVERT (CON.) [Concomitant]
  9. VITAMIN E (CON.) [Concomitant]
  10. NASONEX SPRAY (CON.) [Concomitant]
  11. PROTONIX (CON.) [Concomitant]
  12. PHENERGAN (CON.) [Concomitant]
  13. LITHIUM (PREV.) [Concomitant]

REACTIONS (19)
  - BLOOD CHOLESTEROL INCREASED [None]
  - BLOOD PRESSURE INCREASED [None]
  - BRONCHITIS [None]
  - CARDIAC FAILURE CONGESTIVE [None]
  - DEPRESSION [None]
  - DERMATITIS [None]
  - FIBROMYALGIA [None]
  - GASTROOESOPHAGEAL REFLUX DISEASE [None]
  - HIATUS HERNIA [None]
  - IRRITABLE BOWEL SYNDROME [None]
  - MULTIPLE ALLERGIES [None]
  - MYOCARDIAL INFARCTION [None]
  - NIGHT BLINDNESS [None]
  - OSTEOARTHRITIS [None]
  - RHEUMATOID ARTHRITIS [None]
  - SINUSITIS [None]
  - URINARY INCONTINENCE [None]
  - VERTIGO [None]
  - VISION BLURRED [None]
